FAERS Safety Report 21299336 (Version 2)
Quarter: 2022Q4

REPORT INFORMATION
  Report Type: Spontaneous
  Country: ZA (occurrence: ZA)
  Receive Date: 20220906
  Receipt Date: 20221202
  Transmission Date: 20230113
  Serious: Yes (Death, Other)
  Sender: FDA-Public Use
  Company Number: ZA-TAKEDA-2022TUS061906

PATIENT
  Age: 64 Year
  Sex: Female
  Weight: 46 kg

DRUGS (1)
  1. NINLARO [Suspect]
     Active Substance: IXAZOMIB CITRATE
     Indication: Plasma cell myeloma
     Dosage: 4 MILLIGRAM
     Route: 048
     Dates: start: 20220128, end: 20220512

REACTIONS (1)
  - Death [Fatal]

NARRATIVE: CASE EVENT DATE: 20220513
